FAERS Safety Report 6288302-8 (Version None)
Quarter: 2009Q3

REPORT INFORMATION
  Report Type: 
  Country: None (occurrence: None)
  Receive Date: 20090729
  Receipt Date: 20090727
  Transmission Date: 20100115
  Serious: Yes (Disabling)
  Sender: FDA-Public Use
  Company Number: IT-BAYER-200921544GPV

PATIENT
  Age: 23 Month
  Sex: Male

DRUGS (1)
  1. ASPIRIN [Suspect]
     Indication: ANTIPHOSPHOLIPID SYNDROME
     Dosage: TOTAL DAILY DOSE: 100 MG  UNIT DOSE: 100 MG
     Route: 064
     Dates: start: 20040810, end: 20041206

REACTIONS (1)
  - MENTAL RETARDATION [None]
